FAERS Safety Report 9165235 (Version 3)
Quarter: 2013Q3

REPORT INFORMATION
  Report Type: Spontaneous
  Country: IE (occurrence: IE)
  Receive Date: 20130315
  Receipt Date: 20130906
  Transmission Date: 20140515
  Serious: Yes (Hospitalization, Other)
  Sender: FDA-Public Use
  Company Number: IE-JNJFOC-20130305096

PATIENT
  Age: 45 Year
  Sex: Male

DRUGS (11)
  1. SIMPONI [Suspect]
     Indication: ANKYLOSING SPONDYLITIS
     Dosage: 5 TO 6 DOSES
     Route: 058
     Dates: start: 201204, end: 201209
  2. LOSEC [Concomitant]
     Route: 065
  3. PREDNISOLONE [Concomitant]
     Route: 065
  4. MOBIC [Concomitant]
     Indication: OSTEOARTHRITIS
     Route: 065
  5. MOBIC [Concomitant]
     Indication: PAIN
     Route: 065
  6. EPILIM [Concomitant]
     Indication: BIPOLAR DISORDER
     Route: 065
  7. PARAMOL [Concomitant]
     Indication: OSTEOARTHRITIS
     Dosage: 500/10
     Route: 065
  8. PARAMOL [Concomitant]
     Indication: PAIN
     Dosage: 500/10
     Route: 065
  9. BISOPROLOL [Concomitant]
     Route: 065
  10. CHONDROITIN SULFATE [Concomitant]
     Indication: OSTEOARTHRITIS
     Dosage: ^6 OD^
     Route: 065
  11. COD LIVER OIL [Concomitant]
     Route: 065

REACTIONS (5)
  - Cardiomyopathy [Unknown]
  - Nerve compression [Not Recovered/Not Resolved]
  - Cellulitis [Unknown]
  - Ankylosing spondylitis [Unknown]
  - Drug ineffective [Recovered/Resolved]
